FAERS Safety Report 7419634-5 (Version None)
Quarter: 2011Q2

REPORT INFORMATION
  Report Type: 
  Country: None (occurrence: None)
  Receive Date: 20110418
  Receipt Date: 20110412
  Transmission Date: 20111010
  Serious: Yes (Hospitalization, Other)
  Sender: FDA-Public Use
  Company Number: CA-US-EMD SERONO, INC.-7004690

PATIENT
  Sex: Female

DRUGS (5)
  1. REBIF [Suspect]
     Route: 058
     Dates: start: 20100715, end: 20100914
  2. REBIF [Suspect]
     Route: 058
     Dates: start: 20100927, end: 20101101
  3. ADVIL LIQUI-GELS [Concomitant]
  4. REBIF [Suspect]
     Indication: RELAPSING-REMITTING MULTIPLE SCLEROSIS
     Route: 058
     Dates: start: 20100407, end: 20100715
  5. YASMIN [Concomitant]
     Indication: CONTRACEPTION

REACTIONS (8)
  - FEAR OF NEEDLES [None]
  - INJECTION SITE PAIN [None]
  - INJECTION SITE ERYTHEMA [None]
  - INJECTION SITE HAEMATOMA [None]
  - DRUG DOSE OMISSION [None]
  - ABORTION SPONTANEOUS [None]
  - DRUG EXPOSURE DURING PREGNANCY [None]
  - INJECTION SITE REACTION [None]
